FAERS Safety Report 6858096-3 (Version None)
Quarter: 2010Q3

REPORT INFORMATION
  Report Type: 
  Country: None (occurrence: None)
  Receive Date: 20100719
  Receipt Date: 20080415
  Transmission Date: 20110219
  Serious: Yes (Other)
  Sender: FDA-Public Use
  Company Number: US-PFIZER INC-2008009581

PATIENT
  Sex: Male
  Weight: 78.636 kg

DRUGS (10)
  1. CHANTIX [Suspect]
     Indication: SMOKING CESSATION THERAPY
     Dates: start: 20071029
  2. ALL OTHER THERAPEUTIC PRODUCTS [Concomitant]
  3. PROGRAF [Concomitant]
  4. PREDNISONE [Concomitant]
  5. CELLCEPT [Concomitant]
  6. PRILOSEC [Concomitant]
  7. PROCARDIA XL [Concomitant]
  8. METOPROLOL [Concomitant]
  9. FISH OIL [Concomitant]
  10. MULTI-VITAMINS [Concomitant]

REACTIONS (2)
  - DIABETES MELLITUS [None]
  - UPPER RESPIRATORY TRACT INFECTION [None]
